FAERS Safety Report 13533426 (Version 1)
Quarter: 2017Q2

REPORT INFORMATION
  Report Type: Spontaneous
  Country: CH (occurrence: CH)
  Receive Date: 20170510
  Receipt Date: 20170510
  Transmission Date: 20170830
  Serious: Yes (Death, Hospitalization)
  Sender: FDA-Public Use
  Company Number: CH-BAYER-2017-086081

PATIENT
  Age: 76 Year
  Sex: Female

DRUGS (9)
  1. REMERON [Concomitant]
     Active Substance: MIRTAZAPINE
     Indication: SLEEP DISORDER
     Dosage: 15 MG, QD
     Route: 048
     Dates: start: 20141218, end: 20170208
  2. ASPIRIN CARDIO 100 MG [Suspect]
     Active Substance: ASPIRIN
     Dosage: 100 MG, QD
     Route: 048
     Dates: start: 20140514, end: 20170208
  3. PANTOPRAZOLE [Concomitant]
     Active Substance: PANTOPRAZOLE
     Dosage: 40 MG, QD
     Route: 048
     Dates: start: 20140514, end: 20170208
  4. CRESTOR [Concomitant]
     Active Substance: ROSUVASTATIN CALCIUM
     Dosage: 10 MG, QD
     Route: 048
     Dates: start: 20140514, end: 20170208
  5. MARCOUMAR [Suspect]
     Active Substance: PHENPROCOUMON
     Dosage: 3 MG, QD
     Route: 048
     Dates: start: 20140514, end: 20170208
  6. URICONORM [Concomitant]
     Dosage: 100 MG, QD
     Route: 048
     Dates: start: 20150401, end: 20170208
  7. TORASEMID [Concomitant]
     Active Substance: TORSEMIDE
     Dosage: 50 MG, QD
     Route: 048
     Dates: start: 20140514, end: 20170208
  8. TRIATEC [Concomitant]
     Active Substance: RAMIPRIL
     Dosage: 1.25 MG, QD
     Route: 048
     Dates: start: 20140514, end: 20170208
  9. DAFALGAN [Concomitant]
     Active Substance: ACETAMINOPHEN
     Dosage: 1 G, UNK
     Route: 048
     Dates: start: 20140514, end: 20170208

REACTIONS (1)
  - Subarachnoid haemorrhage [Fatal]

NARRATIVE: CASE EVENT DATE: 20170202
